FAERS Safety Report 18355804 (Version 2)
Quarter: 2020Q4

REPORT INFORMATION
  Report Type: Spontaneous
  Country: US (occurrence: US)
  Receive Date: 20201007
  Receipt Date: 20201009
  Transmission Date: 20210114
  Serious: No
  Sender: FDA-Public Use
  Company Number: US-PFIZER INC-2020386480

PATIENT
  Age: 64 Year
  Sex: Female

DRUGS (2)
  1. IBRANCE [Suspect]
     Active Substance: PALBOCICLIB
     Indication: BREAST CANCER METASTATIC
     Dosage: 125 MG
     Dates: start: 20200909
  2. FASLODEX [Suspect]
     Active Substance: FULVESTRANT
     Indication: BREAST CANCER METASTATIC
     Dosage: 125 MG
     Dates: start: 20200909

REACTIONS (10)
  - Dehydration [Unknown]
  - Fatigue [Unknown]
  - Pain in jaw [Unknown]
  - Rash [Unknown]
  - White blood cell count decreased [Unknown]
  - Nasal dryness [Unknown]
  - Lip dry [Unknown]
  - Chapped lips [Unknown]
  - Nausea [Unknown]
  - Gastrooesophageal reflux disease [Unknown]
